FAERS Safety Report 5154554-0 (Version None)
Quarter: 2006Q4

REPORT INFORMATION
  Report Type: 
  Country: None (occurrence: None)
  Receive Date: 20061114
  Receipt Date: 20061031
  Transmission Date: 20070319
  Serious: Yes (Death, Life-Threatening)
  Sender: FDA-Public Use
  Company Number: RENA-11986

PATIENT
  Age: 65 Year
  Sex: Male

DRUGS (1)
  1. RENAGEL [Suspect]
     Indication: HYPERPHOSPHATAEMIA
     Dosage: 1 G QD PO
     Route: 048
     Dates: start: 20030701, end: 20061017

REACTIONS (11)
  - ABSCESS [None]
  - BLADDER CANCER [None]
  - CATHETER RELATED INFECTION [None]
  - CONSTIPATION [None]
  - HAEMODIALYSIS [None]
  - INFLAMMATION [None]
  - LARGE INTESTINE PERFORATION [None]
  - MALIGNANT NEOPLASM PROGRESSION [None]
  - PYOTHORAX [None]
  - VASCULAR PSEUDOANEURYSM [None]
  - VASCULAR PSEUDOANEURYSM RUPTURED [None]
